FAERS Safety Report 16946922 (Version 7)
Quarter: 2020Q4

REPORT INFORMATION
  Report Type: Report from Study
  Country: ZA (occurrence: ZA)
  Receive Date: 20191022
  Receipt Date: 20201102
  Transmission Date: 20210113
  Serious: Yes (Hospitalization, Other)
  Sender: FDA-Public Use
  Company Number: PHHY2018ZA131607

PATIENT
  Age: 54 Year
  Sex: Female

DRUGS (5)
  1. STILNOX [Concomitant]
     Active Substance: ZOLPIDEM TARTRATE
     Indication: PRODUCT USED FOR UNKNOWN INDICATION
     Dosage: 12.5 MG, UNK
     Route: 065
  2. BETAFERON [Concomitant]
     Active Substance: INTERFERON BETA-1B
     Indication: PRODUCT USED FOR UNKNOWN INDICATION
     Dosage: UNK
     Route: 065
     Dates: start: 201506, end: 201811
  3. TUVIGIN [Suspect]
     Active Substance: FINGOLIMOD HYDROCHLORIDE
     Indication: MULTIPLE SCLEROSIS
     Dosage: 0.5 MG, QD
     Route: 048
     Dates: start: 20191203
  4. METHOTREXATE. [Concomitant]
     Active Substance: METHOTREXATE
     Indication: PRODUCT USED FOR UNKNOWN INDICATION
     Dosage: UNK
     Route: 065
  5. TUVIGIN [Suspect]
     Active Substance: FINGOLIMOD HYDROCHLORIDE
     Indication: RELAPSING-REMITTING MULTIPLE SCLEROSIS
     Dosage: 0.5 MG, QD
     Route: 048
     Dates: start: 20181015

REACTIONS (26)
  - Cystitis [Unknown]
  - Urinary tract infection [Unknown]
  - Pain in jaw [Not Recovered/Not Resolved]
  - Head injury [Unknown]
  - Balance disorder [Not Recovered/Not Resolved]
  - Fall [Not Recovered/Not Resolved]
  - Cough [Recovering/Resolving]
  - Visual impairment [Recovering/Resolving]
  - Concussion [Unknown]
  - Influenza [Recovered/Resolved]
  - Nystagmus [Unknown]
  - Anxiety [Unknown]
  - Asthenia [Recovering/Resolving]
  - Progressive multiple sclerosis [Unknown]
  - Blood pressure fluctuation [Unknown]
  - Pain [Not Recovered/Not Resolved]
  - Feeling abnormal [Unknown]
  - Trigeminal neuralgia [Unknown]
  - Malaise [Unknown]
  - Pollakiuria [Unknown]
  - Hypoaesthesia [Unknown]
  - Paraesthesia [Unknown]
  - Weight increased [Unknown]
  - Gait disturbance [Unknown]
  - Stress [Recovering/Resolving]
  - Dizziness [Unknown]

NARRATIVE: CASE EVENT DATE: 20181015
